FAERS Safety Report 23282526 (Version 1)
Quarter: 2023Q4

REPORT INFORMATION
  Report Type: Spontaneous
  Country: US (occurrence: US)
  Receive Date: 20231211
  Receipt Date: 20231211
  Transmission Date: 20240110
  Serious: Yes (Death)
  Sender: FDA-Public Use
  Company Number: US-ABBVIE-5531958

PATIENT
  Age: 28 Year
  Sex: Male
  Weight: 68 kg

DRUGS (2)
  1. SAPHRIS [Suspect]
     Active Substance: ASENAPINE MALEATE
     Indication: Bipolar disorder
     Dosage: FORM STRENGTH: 5 MILLIGRAM?DISCONTINUED IN 2023 BEFORE SWITCHED FREQUENCY
     Route: 048
     Dates: start: 202311
  2. SAPHRIS [Suspect]
     Active Substance: ASENAPINE MALEATE
     Indication: Bipolar disorder
     Dosage: TOTAL DOSE 10 MILLIGRAM?STARTED AROUND 16 OR 17 NOV 2023?FORM STRENGTH: 5 MILLIGRAM
     Route: 048
     Dates: start: 202311, end: 20231201

REACTIONS (3)
  - Completed suicide [Fatal]
  - Restless legs syndrome [Not Recovered/Not Resolved]
  - Akathisia [Unknown]

NARRATIVE: CASE EVENT DATE: 20231101
